FAERS Safety Report 9171246 (Version 2)
Quarter: 2013Q2

REPORT INFORMATION
  Report Type: Spontaneous
  Country: US (occurrence: US)
  Receive Date: 20130319
  Receipt Date: 20130410
  Transmission Date: 20140414
  Serious: Yes (Other)
  Sender: FDA-Public Use
  Company Number: US-PFIZER INC-2013089116

PATIENT
  Age: 47 Year
  Sex: Female
  Weight: 88.44 kg

DRUGS (8)
  1. NEURONTIN [Suspect]
     Indication: NEURALGIA
     Dosage: UNK
     Dates: start: 2009
  2. PREMPRO [Suspect]
     Indication: MENOPAUSE
     Dosage: UNK
  3. LASIX [Concomitant]
     Dosage: UNK
  4. SPIRIVA [Concomitant]
     Dosage: UNK
  5. POTASSIUM [Concomitant]
     Dosage: UNK
  6. PAXIL [Concomitant]
     Dosage: UNK
  7. PRILOSEC [Concomitant]
     Dosage: UNK
  8. CARAFATE [Concomitant]
     Dosage: UNK

REACTIONS (4)
  - Appendicitis perforated [Unknown]
  - Pneumonia [Not Recovered/Not Resolved]
  - Fungal infection [Not Recovered/Not Resolved]
  - Oral candidiasis [Not Recovered/Not Resolved]
